FAERS Safety Report 24310688 (Version 1)
Quarter: 2024Q3

REPORT INFORMATION
  Report Type: Spontaneous
  Country: FR (occurrence: FR)
  Receive Date: 20240912
  Receipt Date: 20240912
  Transmission Date: 20241017
  Serious: Yes (Other)
  Sender: RECORDATI
  Company Number: None

PATIENT

DRUGS (2)
  1. ISTURISA [Interacting]
     Active Substance: OSILODROSTAT PHOSPHATE
     Indication: Hyperadrenocorticism
     Dosage: 10 MG, QD
     Route: 048
     Dates: start: 20240806
  2. FLUINDIONE [Interacting]
     Active Substance: FLUINDIONE
     Indication: Atrial fibrillation
     Dosage: 20 MG, QD
     Route: 048
     Dates: start: 2023, end: 20240820

REACTIONS (2)
  - Anticoagulation drug level above therapeutic [Recovered/Resolved]
  - Drug interaction [Recovered/Resolved]

NARRATIVE: CASE EVENT DATE: 20240801
